FAERS Safety Report 6965214-5 (Version None)
Quarter: 2010Q3

REPORT INFORMATION
  Report Type: 
  Country: None (occurrence: None)
  Receive Date: 20100903
  Receipt Date: 20100823
  Transmission Date: 20110219
  Serious: Yes (Hospitalization, Other)
  Sender: FDA-Public Use
  Company Number: PHHY2010MX28703

PATIENT
  Age: 77 Year
  Sex: Male

DRUGS (2)
  1. TEGRETOL [Suspect]
     Indication: TRIGEMINAL NEURALGIA
     Dosage: 3 TABLETS OF 200 MG DAILY
     Route: 048
     Dates: start: 19900101
  2. TEGRETOL [Suspect]
     Dosage: 2.5 TABLET (200 MG PER DAY)
     Route: 048
     Dates: start: 20100810

REACTIONS (4)
  - ACCIDENT [None]
  - FALL [None]
  - HIP ARTHROPLASTY [None]
  - HIP FRACTURE [None]
